FAERS Safety Report 8826531 (Version 2)
Quarter: 2012Q4

REPORT INFORMATION
  Report Type: 
  Country: DE (occurrence: DE)
  Receive Date: 20121007
  Receipt Date: 20121015
  Transmission Date: 20130627
  Serious: Yes (Other)
  Sender: FDA-Public Use
  Company Number: DE-AMGEN-DEUSP2012062607

PATIENT
  Age: 78 Year
  Sex: Female

DRUGS (3)
  1. PROLIA [Suspect]
     Indication: OSTEOPOROSIS
     Dosage: 60 mg, UNK
     Dates: start: 20120425
  2. VITAMIN B12                        /00056201/ [Concomitant]
  3. FLECAINIDE [Concomitant]

REACTIONS (7)
  - Arrhythmia [Unknown]
  - Bone pain [Unknown]
  - Asthenia [Unknown]
  - Osteoporosis [Unknown]
  - Condition aggravated [Unknown]
  - pH urine abnormal [Unknown]
  - Abdominal pain lower [Unknown]
